FAERS Safety Report 25644670 (Version 1)
Quarter: 2025Q3

REPORT INFORMATION
  Report Type: Spontaneous
  Country: GB (occurrence: GB)
  Receive Date: 20250805
  Receipt Date: 20250805
  Transmission Date: 20251020
  Serious: Yes (Other)
  Sender: PFIZER
  Company Number: None

PATIENT

DRUGS (4)
  1. LITFULO [Suspect]
     Active Substance: RITLECITINIB TOSYLATE
     Indication: Alopecia areata
     Dosage: 50 MG, 1X/DAY
     Dates: start: 20250304, end: 20250804
  2. SIMVASTATIN [Concomitant]
     Active Substance: SIMVASTATIN
     Indication: Blood cholesterol
  3. MAXITRAM [Concomitant]
     Indication: Pelvic pain
  4. PREGABALIN [Concomitant]
     Active Substance: PREGABALIN

REACTIONS (1)
  - Furuncle [Recovering/Resolving]

NARRATIVE: CASE EVENT DATE: 20250730
